FAERS Safety Report 9759326 (Version 1)
Quarter: 2013Q4

REPORT INFORMATION
  Report Type: Spontaneous
  Country: US (occurrence: None)
  Receive Date: 20131216
  Receipt Date: 20131216
  Transmission Date: 20140711
  Serious: Yes (Other)
  Sender: FDA-Public Use
  Company Number: 163-21880-12033678(0)

PATIENT
  Age: 75 Year
  Sex: Female

DRUGS (1)
  1. REVLIMID (LENALIDOMIDE) (25 MILLIGRAM, CAPSULES) [Suspect]
     Indication: PLASMA CELL MYELOMA
     Dosage: 25 MG, 1 IN 1 D, PO?15 MG, 1 IN 1 D, PO? ?

REACTIONS (4)
  - Neutrophil count decreased [None]
  - White blood cell count decreased [None]
  - Haemoglobin decreased [None]
  - Platelet count decreased [None]
